FAERS Safety Report 7627433-4 (Version None)
Quarter: 2011Q3

REPORT INFORMATION
  Report Type: 
  Country: None (occurrence: None)
  Receive Date: 20110721
  Receipt Date: 20110712
  Transmission Date: 20111222
  Serious: Yes (Hospitalization)
  Sender: FDA-Public Use
  Company Number: BR-ASTRAZENECA-2011SE42313

PATIENT
  Age: 83 Year
  Sex: Male

DRUGS (7)
  1. ATACAND [Suspect]
     Indication: HYPERTENSION
     Route: 048
     Dates: start: 20100101, end: 20110301
  2. ATENOLOL [Suspect]
     Dosage: PRN
     Route: 048
     Dates: start: 20090101, end: 20110301
  3. PLAVIX [Concomitant]
     Route: 048
     Dates: start: 20100101
  4. COUMADIN [Concomitant]
     Route: 048
     Dates: start: 20100101
  5. ASPIRIN [Concomitant]
     Route: 048
     Dates: start: 20100101
  6. ATENOLOL [Suspect]
     Indication: CARDIAC DISORDER
     Route: 048
     Dates: start: 20090101
  7. CRESTOR [Suspect]
     Route: 048
     Dates: start: 20100101

REACTIONS (7)
  - ARTERIAL OCCLUSIVE DISEASE [None]
  - HYPERTENSION [None]
  - CARDIAC PACEMAKER INSERTION [None]
  - POLYURIA [None]
  - ANGIOPLASTY [None]
  - ARRHYTHMIA [None]
  - DRUG INEFFECTIVE [None]
